FAERS Safety Report 9204274 (Version 1)
Quarter: 2013Q2

REPORT INFORMATION
  Report Type: Report from Study
  Country: CN (occurrence: CN)
  Receive Date: 20130402
  Receipt Date: 20130402
  Transmission Date: 20140414
  Serious: Yes (Other)
  Sender: FDA-Public Use
  Company Number: CN-ROCHE-1170729

PATIENT
  Sex: Female

DRUGS (2)
  1. MYCOPHENOLATE MOFETIL [Suspect]
     Indication: RENAL TRANSPLANT
     Route: 048
     Dates: start: 200406
  2. CICLOSPORIN [Concomitant]

REACTIONS (4)
  - Thyroid cancer [Recovered/Resolved]
  - Pancreatic carcinoma [Unknown]
  - Pancreatitis [Recovered/Resolved]
  - Pneumonia [Not Recovered/Not Resolved]
